FAERS Safety Report 6503208-4 (Version None)
Quarter: 2009Q4

REPORT INFORMATION
  Report Type: 
  Country: None (occurrence: None)
  Receive Date: 20091217
  Receipt Date: 20091208
  Transmission Date: 20100525
  Serious: Yes (Other)
  Sender: FDA-Public Use
  Company Number: US-JNJFOC-20091103281

PATIENT
  Sex: Female

DRUGS (11)
  1. LEVAQUIN [Suspect]
     Indication: PYREXIA
     Route: 050
     Dates: start: 20091025, end: 20091025
  2. LEVAQUIN [Suspect]
     Indication: FLANK PAIN
     Route: 050
     Dates: start: 20091025, end: 20091025
  3. LEVAQUIN [Suspect]
     Indication: URINARY TRACT INFECTION
     Route: 050
     Dates: start: 20091025, end: 20091025
  4. LEVAQUIN [Suspect]
     Indication: PYELONEPHRITIS
     Route: 048
     Dates: start: 20091027
  5. LEVAQUIN [Suspect]
     Route: 048
     Dates: start: 20091027
  6. ZOFRAN [Suspect]
     Indication: VOMITING
     Route: 042
  7. ZOFRAN [Suspect]
     Indication: NAUSEA
     Route: 042
  8. PHENAZOPYRIDINE [Suspect]
     Indication: DYSURIA
     Route: 048
  9. GENTAMICIN [Suspect]
     Indication: PROPHYLAXIS
     Route: 042
  10. MORPHINE [Suspect]
     Indication: PAIN
     Route: 065
  11. VICODIN [Concomitant]
     Indication: PAIN
     Route: 065

REACTIONS (10)
  - APHONIA [None]
  - DRY MOUTH [None]
  - DYSPHONIA [None]
  - HYPOAESTHESIA ORAL [None]
  - INFUSION SITE SWELLING [None]
  - NEUROPATHY PERIPHERAL [None]
  - OEDEMA MOUTH [None]
  - PRURITUS GENERALISED [None]
  - RASH GENERALISED [None]
  - VOCAL CORD INFLAMMATION [None]
